FAERS Safety Report 6142272-1 (Version None)
Quarter: 2009Q2

REPORT INFORMATION
  Report Type: 
  Country: None (occurrence: None)
  Receive Date: 20090403
  Receipt Date: 20071121
  Transmission Date: 20091009
  Serious: Yes (Hospitalization, Disabling)
  Sender: FDA-Public Use
  Company Number: US-ASTRAZENECA-2006UW21571

PATIENT
  Age: 19752 Day
  Sex: Male
  Weight: 117.9 kg

DRUGS (23)
  1. SEROQUEL [Suspect]
     Indication: DEPRESSION
     Route: 048
  2. SEROQUEL [Suspect]
     Indication: SCHIZOPHRENIA
     Route: 048
  3. SEROQUEL [Suspect]
     Dosage: 100MG - 300MG
     Route: 048
     Dates: start: 20040428
  4. SEROQUEL [Suspect]
     Dosage: 100MG - 300MG
     Route: 048
     Dates: start: 20040428
  5. MORPHINE SULFATE [Concomitant]
  6. ATENOLOL [Concomitant]
  7. LOPID [Concomitant]
  8. SYNTHROID [Concomitant]
  9. POTASSIUM CHLORIDE [Concomitant]
  10. CEFTRIAXONE [Concomitant]
  11. LEXAPRO [Concomitant]
  12. NICOTINE [Concomitant]
  13. METHYLPREDNIS [Concomitant]
  14. AVELOX [Concomitant]
  15. ALBUTEROL [Concomitant]
  16. OXYGEN [Concomitant]
  17. LASIX [Concomitant]
  18. SALMETEROL [Concomitant]
  19. ATROVENT [Concomitant]
  20. ROCEPHIN [Concomitant]
  21. NICODERM [Concomitant]
  22. CLONIDINE [Concomitant]
  23. ATIVAN [Concomitant]

REACTIONS (11)
  - ANXIETY [None]
  - ASTHMA [None]
  - CHRONIC OBSTRUCTIVE PULMONARY DISEASE [None]
  - CONFUSIONAL STATE [None]
  - COR PULMONALE [None]
  - DIABETES MELLITUS [None]
  - HALLUCINATION [None]
  - HYPERTENSION [None]
  - MENTAL DISORDER [None]
  - OBESITY [None]
  - PNEUMONIA [None]
